FAERS Safety Report 6648070-4 (Version None)
Quarter: 2010Q1

REPORT INFORMATION
  Report Type: 
  Country: None (occurrence: None)
  Receive Date: 20100324
  Receipt Date: 20100317
  Transmission Date: 20100710
  Serious: Yes (Other)
  Sender: FDA-Public Use
  Company Number: PHHY2010RS16028

PATIENT
  Age: 76 Year
  Sex: Female

DRUGS (4)
  1. EXELON [Suspect]
     Indication: DEMENTIA ALZHEIMER'S TYPE
     Dosage: 9 MG DAILY
  2. TANAKAN [Concomitant]
  3. VITAMIN B-12 [Concomitant]
  4. OMEPROL [Concomitant]

REACTIONS (5)
  - BALLISMUS [None]
  - DYSKINESIA [None]
  - NAUSEA [None]
  - VOMITING [None]
  - WEIGHT DECREASED [None]
